FAERS Safety Report 9252734 (Version 10)
Quarter: 2014Q4

REPORT INFORMATION
  Report Type: Report from Study
  Country: GR (occurrence: GR)
  Receive Date: 20130424
  Receipt Date: 20141006
  Transmission Date: 20150529
  Serious: Yes (Life-Threatening, Hospitalization)
  Sender: FDA-Public Use
  Company Number: GR-ROCHE-1216927

PATIENT
  Age: 89 Year
  Sex: Female
  Weight: 44.5 kg

DRUGS (13)
  1. TEVETEN [Concomitant]
     Active Substance: EPROSARTAN MESYLATE
     Indication: CORONARY ARTERY DISEASE
     Route: 065
     Dates: start: 201212
  2. GLYCERYL TRINITRATE [Concomitant]
     Active Substance: NITROGLYCERIN
     Indication: CORONARY ARTERY DISEASE
     Route: 065
     Dates: start: 200201
  3. STILNOX [Concomitant]
     Active Substance: ZOLPIDEM TARTRATE
     Indication: SLEEP DISORDER
     Route: 065
     Dates: start: 20130420, end: 20130423
  4. PLASTER BANDAGE [Concomitant]
     Indication: UPPER LIMB FRACTURE
     Route: 065
     Dates: start: 20130723, end: 20130910
  5. ACCUPRON [Concomitant]
     Indication: CORONARY ARTERY DISEASE
     Route: 065
     Dates: start: 200201
  6. LIPITOR [Concomitant]
     Active Substance: ATORVASTATIN CALCIUM
     Indication: HYPERLIPIDAEMIA
     Route: 065
     Dates: start: 200201
  7. ZANIDIP [Concomitant]
     Active Substance: LERCANIDIPINE HYDROCHLORIDE
     Indication: CORONARY ARTERY DISEASE
     Route: 065
     Dates: start: 200212
  8. FERRO FOLIC [Concomitant]
     Indication: ANAEMIA
     Route: 065
     Dates: start: 20130219
  9. SALOSPIR [Concomitant]
     Active Substance: ASPIRIN\CAFFEINE
     Indication: CORONARY ARTERY DISEASE
     Route: 065
     Dates: start: 200201
  10. TRANXENE T-TAB [Concomitant]
     Active Substance: CLORAZEPATE DIPOTASSIUM
     Indication: SLEEP DISORDER
     Route: 065
     Dates: start: 200212
  11. VISMODEGIB [Suspect]
     Active Substance: VISMODEGIB
     Indication: BASAL CELL CARCINOMA
     Dosage: LAST DOSE PRIOR TO HYPERKALEMIA AND WORSENING OF PRE-EXISTING MILD CHRONIC RENAL INSUFFICIENCY: 17/A
     Route: 048
     Dates: start: 20130219, end: 20130418
  12. BACTRIMEL [Concomitant]
     Active Substance: SULFAMETHOXAZOLE\TRIMETHOPRIM
     Indication: SUPERINFECTION
     Dosage: TOTAL DAILY DOSE: 800 PLUS 160 MG
     Route: 065
     Dates: start: 20130329, end: 20130416
  13. DUPHALAC [Concomitant]
     Active Substance: LACTULOSE
     Indication: CONSTIPATION
     Dosage: DAILY DOSE: 10 CC
     Route: 065
     Dates: start: 20130219

REACTIONS (2)
  - Chronic kidney disease [Recovered/Resolved]
  - Hyperkalaemia [Not Recovered/Not Resolved]

NARRATIVE: CASE EVENT DATE: 20130418
